FAERS Safety Report 23213268 (Version 1)
Quarter: 2023Q4

REPORT INFORMATION
  Report Type: Spontaneous
  Country: US (occurrence: US)
  Receive Date: 20231121
  Receipt Date: 20231121
  Transmission Date: 20240109
  Serious: Yes (Other)
  Sender: FDA-Public Use
  Company Number: US-SUN PHARMACEUTICAL INDUSTRIES LTD-2023R1-417165

PATIENT
  Age: 52 Year
  Sex: Male

DRUGS (3)
  1. BIMATOPROST [Suspect]
     Active Substance: BIMATOPROST
     Indication: Intraocular pressure increased
     Dosage: UNK UNK, QD,  EVERY NIGHT AT BEDTIME
     Route: 047
  2. BROMFENAC [Suspect]
     Active Substance: BROMFENAC SODIUM
     Indication: Intraocular pressure increased
     Dosage: UNK UNK, QD
     Route: 047
  3. TIMOLOL [Suspect]
     Active Substance: TIMOLOL
     Indication: Intraocular pressure increased
     Dosage: UNK UNK, BID
     Route: 047

REACTIONS (2)
  - Intraocular pressure increased [Unknown]
  - Superior vena cava syndrome [Unknown]
